FAERS Safety Report 6914515-5 (Version None)
Quarter: 2010Q3

REPORT INFORMATION
  Report Type: 
  Country: None (occurrence: None)
  Receive Date: 20100809
  Receipt Date: 20100729
  Transmission Date: 20110219
  Serious: Yes (Hospitalization)
  Sender: FDA-Public Use
  Company Number: US-ALEXION-A201000867

PATIENT
  Sex: Female

DRUGS (9)
  1. SOLIRIS [Suspect]
     Indication: PAROXYSMAL NOCTURNAL HAEMOGLOBINURIA
     Dosage: UNK Q2W
     Route: 042
     Dates: start: 20071123
  2. SOLIRIS [Suspect]
     Dosage: Q 10 DAYS
  3. AMILORIDE HYDROCHLORIDE [Concomitant]
     Dosage: 5 MG, QD
  4. FOLIC ACID [Concomitant]
     Dosage: 1 MG, QD
  5. MAGNESIUM OXIDE [Concomitant]
     Dosage: 100 MG, BID
  6. POTASSIUM PHOSPHATE MONOBASIC [Concomitant]
     Dosage: 20 MEQ, TID
  7. ALDACTONE [Concomitant]
     Dosage: 25 MG, QD
  8. AMBIEN [Concomitant]
     Dosage: 5 MG, QD (QHS) PRN
  9. ATIVAN [Concomitant]
     Dosage: 1 MG, QID PRN

REACTIONS (3)
  - DEHYDRATION [None]
  - GASTROINTESTINAL HAEMORRHAGE [None]
  - VIRAL INFECTION [None]
